FAERS Safety Report 15833071 (Version 5)
Quarter: 2019Q1

REPORT INFORMATION
  Report Type: Report from Study
  Country: CA (occurrence: CA)
  Receive Date: 20190116
  Receipt Date: 20190318
  Transmission Date: 20190417
  Serious: Yes (Death, Life-Threatening, Hospitalization, Other)
  Sender: FDA-Public Use
  Company Number: CA-GLAXOSMITHKLINE-CA2019GSK005749

PATIENT
  Sex: Male

DRUGS (4)
  1. MEPOLIZUMAB [Suspect]
     Active Substance: MEPOLIZUMAB
     Indication: ASTHMA
     Dosage: 100 MG, Z, MONTHLY
     Route: 042
     Dates: start: 20180719
  2. XOLAIR [Suspect]
     Active Substance: OMALIZUMAB
     Indication: PRODUCT USED FOR UNKNOWN INDICATION
     Dosage: UNK
  3. FLAGYL [Suspect]
     Active Substance: METRONIDAZOLE\METRONIDAZOLE HYDROCHLORIDE
     Indication: PRODUCT USED FOR UNKNOWN INDICATION
     Dosage: UNK
     Dates: start: 20181228, end: 20190101
  4. CIPROFLOXACIN. [Suspect]
     Active Substance: CIPROFLOXACIN
     Indication: PRODUCT USED FOR UNKNOWN INDICATION
     Dosage: UNK
     Dates: start: 20181228, end: 20190101

REACTIONS (25)
  - Sensory loss [Not Recovered/Not Resolved]
  - Cough [Not Recovered/Not Resolved]
  - Abdominal pain [Not Recovered/Not Resolved]
  - Injection site erythema [Unknown]
  - Musculoskeletal pain [Recovered/Resolved]
  - Pain in extremity [Unknown]
  - Injection site swelling [Unknown]
  - Gastrointestinal cancer metastatic [Unknown]
  - Dyspnoea [Not Recovered/Not Resolved]
  - Pulmonary thrombosis [Unknown]
  - Insomnia [Unknown]
  - Adenocarcinoma [Fatal]
  - Vascular pain [Recovered/Resolved]
  - Hepatic lesion [Fatal]
  - Constipation [Not Recovered/Not Resolved]
  - Nonspecific reaction [Unknown]
  - Vein discolouration [Unknown]
  - Lung disorder [Fatal]
  - Cholangiocarcinoma [Unknown]
  - Gastrointestinal disorder [Not Recovered/Not Resolved]
  - Diplopia [Unknown]
  - Erythema [Unknown]
  - Neoplasm malignant [Unknown]
  - Abdominal distension [Not Recovered/Not Resolved]
  - Pancreatic carcinoma [Unknown]
